FAERS Safety Report 13082666 (Version 1)
Quarter: 2017Q1

REPORT INFORMATION
  Report Type: Spontaneous
  Country: FR (occurrence: FR)
  Receive Date: 20170103
  Receipt Date: 20170103
  Transmission Date: 20170428
  Serious: Yes (Other)
  Sender: FDA-Public Use
  Company Number: ALCN2016FR002478

PATIENT
  Age: 65 Year
  Sex: Female

DRUGS (2)
  1. CROMABAK [Suspect]
     Active Substance: CROMOLYN SODIUM
     Indication: BLEPHARITIS
     Dosage: UNK
     Route: 065
  2. VEXOL [Suspect]
     Active Substance: RIMEXOLONE
     Indication: BLEPHARITIS
     Dosage: UNK
     Route: 047

REACTIONS (3)
  - Laryngeal oedema [Unknown]
  - Gastritis erosive [Unknown]
  - Burning sensation [Recovered/Resolved]

NARRATIVE: CASE EVENT DATE: 201405
